FAERS Safety Report 4264162-1 (Version None)
Quarter: 2004Q1

REPORT INFORMATION
  Report Type: 
  Country: None (occurrence: None)
  Receive Date: 20040102
  Receipt Date: 20031219
  Transmission Date: 20041129
  Serious: Yes (Death, Other)
  Sender: FDA-Public Use
  Company Number: EWC030936175

PATIENT
  Age: 76 Year
  Sex: Male

DRUGS (4)
  1. CIALIS [Suspect]
     Indication: ERECTILE DYSFUNCTION
     Dosage: 20 MG
     Dates: start: 20030604, end: 20030604
  2. CAVINTON (VINPOCETINE) [Concomitant]
  3. ANDAXIN (MEPROBAMATE) [Concomitant]
  4. ALGOPYRIN (AMINOPHENAZONE) [Concomitant]

REACTIONS (4)
  - CARDIAC FAILURE [None]
  - CARDIOMYOPATHY [None]
  - CHRONIC OBSTRUCTIVE AIRWAYS DISEASE [None]
  - CORONARY ARTERY ATHEROSCLEROSIS [None]
